FAERS Safety Report 4148697 (Version 2)
Quarter: 2013Q2

REPORT INFORMATION
  Report Type: Spontaneous
  Country: US (occurrence: None)
  Receive Date: 20040527
  Receipt Date: 20120525
  Transmission Date: 20140414
  Serious: Yes (Other)
  Sender: FDA-Public Use
  Company Number: 344143

PATIENT
  Age: 69 Year
  Sex: Female
  Weight: 81.6 kg

DRUGS (2)
  1. VICTOZA (LIRAGLUTIDE) SOLUTION FOR INJECTION, 6MG/ML [Suspect]
     Indication: PRODUCT USED FOR UNKNOWN INDICATION
     Dosage: 1 DOSE FOR 1 PER WEEK ORAL
     Route: 058
     Dates: start: 20130531
  2. METFORMIN (METFORMIN) [Suspect]
     Indication: TYPE 2 DIABETES MELLITUS

REACTIONS (8)
  - SUICIDAL IDEATION [None]
  - ANXIETY [None]
  - EMOTIONAL DISORDER [None]
  - INSOMNIA [None]
  - Tremor [None]
  - Fatigue [None]
  - Asthenia [None]
  - Hyperhidrosis [None]
